FAERS Safety Report 9723758 (Version 2)
Quarter: 2014Q1

REPORT INFORMATION
  Report Type: Spontaneous
  Country: US (occurrence: US)
  Receive Date: 20131202
  Receipt Date: 20140203
  Transmission Date: 20141002
  Serious: Yes (Other)
  Sender: FDA-Public Use
  Company Number: US-PFIZER INC-2013338302

PATIENT
  Age: 67 Year
  Sex: Female
  Weight: 94.33 kg

DRUGS (16)
  1. LYRICA [Suspect]
     Indication: DIABETIC NEUROPATHY
     Dosage: 50 MG, 2X/DAY
     Route: 048
     Dates: end: 201305
  2. LYRICA [Suspect]
     Dosage: 100 MG, 3X/DAY
     Route: 048
     Dates: start: 201305, end: 2013
  3. LYRICA [Suspect]
     Dosage: 50 MG, 2X/DAY
     Route: 048
     Dates: start: 2013, end: 2013
  4. LYRICA [Suspect]
     Dosage: 100 MG, 1X/DAY
     Route: 048
     Dates: start: 2013, end: 2013
  5. LYRICA [Suspect]
     Dosage: 50 MG, 2X/DAY (50MG 1 CAP TWICE DAILY)
     Route: 048
     Dates: start: 2013
  6. SIMVASTATIN [Concomitant]
     Indication: BLOOD CHOLESTEROL INCREASED
     Dosage: 40 MG, DAILY (40MG 1 TAB DAILY)
     Route: 048
  7. METFORMIN [Concomitant]
     Dosage: 1000 MG, 2X/DAY (1000MG TABLET 1 TAB TWICE DAILY)
     Route: 048
  8. JANUVIA [Concomitant]
     Dosage: 100 MG, DAILY (100 MG TABLET 1 TAB DAILY)
  9. LISINOPRIL [Concomitant]
     Indication: HYPERTENSION
     Dosage: 10 MG, DAILY (10 MG TABLET 1 TAB DAILY)
     Route: 048
  10. LISINOPRIL [Concomitant]
     Indication: RENAL DISORDER
  11. PROPRANOLOL [Concomitant]
     Dosage: 40 MG, 3X/DAY (40MG 1 TAB THREE TIMES DAILY)
     Route: 048
  12. ASPIRIN [Concomitant]
     Dosage: 325 MG, DAILY (325 MG TABLET 1 TAB DAILY)
     Route: 048
  13. CINNAMON [Concomitant]
     Dosage: 1000 MG, DAILY (1000 MG  1 TAB TWICE DAILY)
     Route: 048
  14. MULTIVITAMIN AND MINERAL SUPPLEMENT [Concomitant]
     Dosage: 1 DF, DAILY (1 TAB DAILY)
     Route: 048
  15. ALENDRONATE SODIUM [Concomitant]
     Dosage: 35 MG, WEEKLY (35MG 1 TAB ONCE A WEEK)
     Route: 048
  16. TEMAZEPAM [Concomitant]
     Dosage: 15 MG, 1X/DAY (15MG 1 TAB AT BEDTIME)
     Route: 048

REACTIONS (4)
  - Neoplasm malignant [Recovered/Resolved]
  - Neuropathy peripheral [Recovered/Resolved]
  - Burning sensation [Recovered/Resolved]
  - Pain [Recovered/Resolved]
